FAERS Safety Report 6775482-0 (Version None)
Quarter: 2010Q2

REPORT INFORMATION
  Report Type: 
  Country: None (occurrence: None)
  Receive Date: 20100617
  Receipt Date: 20100521
  Transmission Date: 20101027
  Serious: Yes (Other)
  Sender: FDA-Public Use
  Company Number: PHHY2010US35695

PATIENT
  Age: 54 Year
  Sex: Female
  Weight: 83 kg

DRUGS (8)
  1. VOLTAREN [Suspect]
     Indication: MYALGIA
  2. LIPITOR [Suspect]
     Indication: BLOOD CHOLESTEROL
     Dosage: 20 MG DAILY
     Dates: start: 20070918, end: 20100317
  3. NEURONTIN [Suspect]
     Indication: PAIN IN EXTREMITY
     Dosage: TWO TO THREE TIMES DAILY
  4. ACETAMINOPHEN [Suspect]
  5. DARVOCET-N 100 [Suspect]
  6. MOBIC [Suspect]
  7. SYNTHROID [Concomitant]
  8. STEROIDS NOS [Concomitant]

REACTIONS (7)
  - DRUG INEFFECTIVE [None]
  - FIBROMYALGIA [None]
  - HEPATIC ENZYME INCREASED [None]
  - LOCAL SWELLING [None]
  - MYALGIA [None]
  - PAIN IN EXTREMITY [None]
  - SURGERY [None]
